FAERS Safety Report 14024004 (Version 1)
Quarter: 2017Q3

REPORT INFORMATION
  Report Type: Report from Study
  Country: None (occurrence: CO)
  Receive Date: 20170929
  Receipt Date: 20170929
  Transmission Date: 20171128
  Serious: Yes (Death)
  Sender: FDA-Public Use
  Company Number: CO-ABBVIE-17S-036-2115189-00

PATIENT
  Age: 49 Year
  Sex: Female
  Weight: 63 kg

DRUGS (6)
  1. NPH INSULIN [Concomitant]
     Active Substance: INSULIN BEEF
     Indication: PRODUCT USED FOR UNKNOWN INDICATION
  2. CLONIDINE. [Concomitant]
     Active Substance: CLONIDINE
     Indication: PRODUCT USED FOR UNKNOWN INDICATION
  3. AMLODIPINE [Concomitant]
     Active Substance: AMLODIPINE BESYLATE
     Indication: PRODUCT USED FOR UNKNOWN INDICATION
  4. ZEMPLAR [Suspect]
     Active Substance: PARICALCITOL
     Indication: HYPERPARATHYROIDISM SECONDARY
     Route: 042
     Dates: start: 20170224, end: 20170904
  5. FUROSEMIDE. [Concomitant]
     Active Substance: FUROSEMIDE
     Indication: PRODUCT USED FOR UNKNOWN INDICATION
  6. ACETYLSALICYLIC ACID [Concomitant]
     Active Substance: ASPIRIN
     Indication: PRODUCT USED FOR UNKNOWN INDICATION

REACTIONS (4)
  - Road traffic accident [Fatal]
  - Contusion [Fatal]
  - Death [Fatal]
  - Multiple injuries [Fatal]

NARRATIVE: CASE EVENT DATE: 20170919
